FAERS Safety Report 9072368 (Version 1)
Quarter: 2013Q1

REPORT INFORMATION
  Report Type: Spontaneous
  Country: US (occurrence: US)
  Receive Date: 20130206
  Receipt Date: 20130206
  Transmission Date: 20140127
  Serious: No
  Sender: FDA-Public Use
  Company Number: US-ALLERGAN-1218128US

PATIENT
  Age: 68 Year
  Sex: Female

DRUGS (14)
  1. RESTASIS? [Suspect]
     Indication: DRY EYE
     Dosage: 2 GTT, BID
     Route: 047
     Dates: start: 20121222, end: 20121224
  2. LOTEMAX [Suspect]
     Indication: EYE INFLAMMATION
     Dosage: 2 GTT, TID
     Route: 047
     Dates: start: 20121222
  3. LOTEMAX [Suspect]
     Dosage: UNK
  4. DIOVAN                             /01319601/ [Concomitant]
     Indication: HYPERTENSION
     Dosage: UNK UNK, QD
     Route: 048
  5. TORSEMIDE [Concomitant]
     Indication: HYPERTENSION
     Dosage: 20 MG, QD
     Route: 048
  6. ALLOPURINOL                        /00003302/ [Concomitant]
     Indication: GOUT
     Dosage: 300 MG, QD
     Route: 048
  7. OMEPRAZOLE [Concomitant]
     Indication: GASTROOESOPHAGEAL REFLUX DISEASE
     Dosage: 20 MG, QD
     Route: 048
  8. ALBUTEROL                          /00139501/ [Concomitant]
     Indication: ASTHMA
     Dosage: UNK UNK, PRN
     Route: 055
  9. KLOR-CON [Concomitant]
     Indication: ELECTROLYTE SUBSTITUTION THERAPY
     Dosage: 20 MEQ, QD
     Route: 048
  10. ALLERGIES INJECTIONS NOS [Concomitant]
     Indication: HYPERSENSITIVITY
     Dosage: UNK
  11. FISH OIL [Concomitant]
     Indication: SUPPLEMENTATION THERAPY
     Dosage: UNK
     Route: 048
  12. CALCIUM [Concomitant]
     Indication: SUPPLEMENTATION THERAPY
     Dosage: UNK
     Route: 048
  13. MAGNESIUM [Concomitant]
     Indication: SUPPLEMENTATION THERAPY
     Dosage: UNK
     Route: 048
  14. MULTI VITAMIN [Concomitant]
     Indication: SUPPLEMENTATION THERAPY
     Dosage: UNK
     Route: 048

REACTIONS (9)
  - Eye irritation [Recovering/Resolving]
  - Scleral hyperaemia [Recovering/Resolving]
  - Erythema of eyelid [Recovering/Resolving]
  - Vision blurred [Unknown]
  - Eye pruritus [Unknown]
  - Lacrimation increased [Unknown]
  - Foreign body sensation in eyes [Unknown]
  - Eye pain [Unknown]
  - Vision blurred [Unknown]
